FAERS Safety Report 4741069-4 (Version None)
Quarter: 2005Q3

REPORT INFORMATION
  Report Type: 
  Country: None (occurrence: None)
  Receive Date: 20050810
  Receipt Date: 20040602
  Transmission Date: 20060218
  Serious: Yes (Other)
  Sender: FDA-Public Use
  Company Number: BE-GLAXOSMITHKLINE-B0334800A

PATIENT
  Age: 42 Year
  Sex: Female
  Weight: 60 kg

DRUGS (3)
  1. SEROXAT [Suspect]
     Indication: DEPRESSION
     Dosage: 30MG PER DAY
     Route: 048
     Dates: start: 20030201, end: 20040630
  2. GLYCERINE [Concomitant]
     Route: 054
  3. XANAX [Concomitant]
     Indication: DRUG USE FOR UNKNOWN INDICATION
     Dosage: 5DROP THREE TIMES PER DAY
     Route: 048
     Dates: start: 20040212, end: 20040630

REACTIONS (4)
  - CONSTIPATION [None]
  - EUPHORIC MOOD [None]
  - NAUSEA [None]
  - TREMOR [None]
